FAERS Safety Report 18267321 (Version 2)
Quarter: 2020Q4

REPORT INFORMATION
  Report Type: Report from Study
  Country: GB (occurrence: GB)
  Receive Date: 20200915
  Receipt Date: 20201006
  Transmission Date: 20210113
  Serious: Yes (Death, Hospitalization)
  Sender: FDA-Public Use
  Company Number: GB-BAYER-2020-194556

PATIENT
  Age: 32 Year
  Sex: Female
  Weight: 50 kg

DRUGS (4)
  1. RED BLOOD CELLS [Concomitant]
     Active Substance: HUMAN RED BLOOD CELL
     Indication: TRANSFUSION
     Dosage: 1150 MILLILITRE TOTAL INTRA AND POST-OPERATIVELY (UP TO 48 HOURS)
     Route: 065
     Dates: start: 20200322
  2. HEPARIN [Concomitant]
     Active Substance: HEPARIN SODIUM
     Indication: ANTICOAGULANT THERAPY
     Dosage: UNK
     Route: 065
  3. TRASYLOL [Suspect]
     Active Substance: APROTININ
     Indication: HEART TRANSPLANT
     Dosage: 450 MILLILITRE TOTAL LOADING DOSE 2 MILLION KIU PUMP PRIMING DOSE 0 MILLION KIU TOTAL CONTINUOUS INF
     Route: 065
     Dates: start: 20200322, end: 20200322
  4. HEPARIN [Concomitant]
     Active Substance: HEPARIN SODIUM
     Indication: ANTICOAGULANT THERAPY
     Dosage: 50 KILOINTERNATIONAL UNIT TOTAL DURING SURGERY
     Route: 065
     Dates: start: 20200322, end: 20200322

REACTIONS (3)
  - Product use in unapproved indication [Unknown]
  - Renal failure [Recovered/Resolved]
  - Off label use [Unknown]

NARRATIVE: CASE EVENT DATE: 20200322
